FAERS Safety Report 6464220-7 (Version None)
Quarter: 2009Q4

REPORT INFORMATION
  Report Type: 
  Country: None (occurrence: None)
  Receive Date: 20091201
  Receipt Date: 20091123
  Transmission Date: 20100525
  Serious: Yes (Hospitalization, Other)
  Sender: FDA-Public Use
  Company Number: US-ELI_LILLY_AND_COMPANY-US200911006222

PATIENT
  Sex: Female

DRUGS (18)
  1. HUMALOG [Suspect]
     Indication: DIABETES MELLITUS
     Dosage: 15 U, DAILY (1/D)
     Dates: start: 20081101
  2. HUMALOG [Suspect]
     Dosage: 18 U, 2/D
     Dates: start: 20081101
  3. HUMALOG [Suspect]
     Dates: start: 20081101
  4. HUMALOG [Suspect]
     Dosage: 25 U, 3/D
     Dates: start: 19890101, end: 20081101
  5. HUMALOG [Suspect]
     Dosage: 25 U, 3/D
     Dates: start: 19890101, end: 20081101
  6. HUMULIN N [Suspect]
     Indication: DIABETES MELLITUS
     Dosage: 35 U, 3/D
     Dates: start: 19890101, end: 20081101
  7. LANTUS [Concomitant]
     Dosage: 54 U, EACH EVENING
  8. DIPHENOXYLATE HCL + ATROPINE SULFATE [Concomitant]
     Indication: DIARRHOEA
     Dosage: UNK, 4/D
  9. FUROSEMIDE [Concomitant]
     Dosage: 40 MG, UNK
  10. METOPROLOL [Concomitant]
     Dosage: 50 MG, 2/D
  11. OMEPRAZOLE [Concomitant]
     Dosage: 20 MG, UNK
  12. PLAVIX [Concomitant]
     Dosage: 75 MG, UNK
  13. CLONIDINE HCL [Concomitant]
     Dosage: 0.1 MG, EACH EVENING
  14. LEVOTHYROXINE SODIUM [Concomitant]
     Dosage: 200 MG, DAILY (1/D)
  15. AMLODIPINE BESYLATE [Concomitant]
     Dosage: 5 MG, DAILY (1/D)
  16. LISINOPRIL [Concomitant]
     Dosage: 40 MG, DAILY (1/D)
  17. PREVALITE [Concomitant]
     Dosage: UNK, 4/D
  18. METAMUCIL [Concomitant]
     Dosage: UNK, AS NEEDED

REACTIONS (8)
  - BLOOD GLUCOSE DECREASED [None]
  - BLOOD GLUCOSE INCREASED [None]
  - CATARACT [None]
  - HYPOGLYCAEMIC SEIZURE [None]
  - INCORRECT DOSE ADMINISTERED [None]
  - MUSCULAR WEAKNESS [None]
  - NERVE INJURY [None]
  - VISUAL ACUITY REDUCED [None]
